FAERS Safety Report 9911731 (Version 2)
Quarter: 2014Q1

REPORT INFORMATION
  Report Type: Spontaneous
  Country: BR (occurrence: BR)
  Receive Date: 20140219
  Receipt Date: 20140219
  Transmission Date: 20141002
  Serious: Yes (Life-Threatening, Other)
  Sender: FDA-Public Use
  Company Number: PHHY2014BR015269

PATIENT
  Age: 72 Year
  Sex: Female
  Weight: 50 kg

DRUGS (4)
  1. RAZAPINA [Suspect]
     Indication: GASTRITIS
     Dosage: HALF TABLET AND ONE TABLET AT NIGHT
     Route: 048
     Dates: start: 20140202, end: 20140203
  2. RAZAPINA [Suspect]
     Indication: SLEEP DISORDER
  3. RAZAPINA [Suspect]
     Indication: WEIGHT GAIN POOR
  4. ALPRAZOLAM [Concomitant]
     Indication: INSOMNIA
     Dates: start: 201308

REACTIONS (7)
  - Feeling abnormal [Recovered/Resolved]
  - Fall [Recovered/Resolved]
  - Syncope [Recovered/Resolved]
  - Aphagia [Recovered/Resolved]
  - Abdominal pain [Recovered/Resolved]
  - Hallucination [Recovered/Resolved]
  - Local swelling [Recovered/Resolved]
